FAERS Safety Report 16545048 (Version 1)
Quarter: 2019Q3

REPORT INFORMATION
  Report Type: Spontaneous
  Country: US (occurrence: US)
  Receive Date: 20190708
  Receipt Date: 20190708
  Transmission Date: 20191004
  Serious: No
  Sender: FDA-Public Use
  Company Number: None

PATIENT
  Age: 78 Year
  Sex: Male

DRUGS (2)
  1. REVLIMID [Concomitant]
     Active Substance: LENALIDOMIDE
     Dates: start: 20190612, end: 20190708
  2. NINLARO [Suspect]
     Active Substance: IXAZOMIB CITRATE
     Dates: start: 20190612, end: 20190708

REACTIONS (1)
  - Disease progression [None]

NARRATIVE: CASE EVENT DATE: 20190625
